FAERS Safety Report 9505721 (Version 1)
Quarter: 2013Q1

REPORT INFORMATION
  Report Type: Spontaneous
  Country: US (occurrence: None)
  Receive Date: 20130220
  Receipt Date: 20130220
  Transmission Date: 20140127
  Serious: No
  Sender: FDA-Public Use
  Company Number: 1000040154

PATIENT
  Age: 58 Year
  Sex: Female

DRUGS (1)
  1. VIIBRYD [Suspect]
     Indication: ANXIETY
     Route: 048
     Dates: start: 201209, end: 2012

REACTIONS (9)
  - Myalgia [None]
  - Insomnia [None]
  - Paraesthesia [None]
  - Arthralgia [None]
  - Hypoaesthesia [None]
  - Abnormal dreams [None]
  - Headache [None]
  - Depressed mood [None]
  - Anxiety [None]
